FAERS Safety Report 18338232 (Version 1)
Quarter: 2020Q4

REPORT INFORMATION
  Report Type: Spontaneous
  Country: DE (occurrence: DE)
  Receive Date: 20201002
  Receipt Date: 20201002
  Transmission Date: 20210113
  Serious: Yes (Other)
  Sender: FDA-Public Use
  Company Number: DE-MYLANLABS-2020M1082558

PATIENT
  Age: 58 Year
  Sex: Female
  Weight: 83 kg

DRUGS (9)
  1. IBRANCE [Concomitant]
     Active Substance: PALBOCICLIB
     Dosage: 1 STUCK TGL.
     Dates: start: 202006
  2. LETROZOL [Concomitant]
     Active Substance: LETROZOLE
     Dosage: 1 DOSAGE FORM, QD 1 STUCK TGL.
     Dates: start: 202006
  3. CEFASEL [Concomitant]
     Dosage: 2 DOSAGE FORM, QD, 2 STUCK TGL.
     Dates: start: 202007
  4. NOVALGINA [Concomitant]
     Active Substance: METAMIZOLE SODIUM
     Dosage: 90 TGL.
     Dates: start: 202006
  5. BUDIAIR [Concomitant]
     Active Substance: BUDESONIDE
     Dosage: 2X TGL.
     Dates: start: 201808
  6. ZOLEDRONIC ACID MYLAN 4 MG/5 ML CONCENTRATE FOR SOLUTION FOR INFUSION [Suspect]
     Active Substance: ZOLEDRONIC ACID
     Indication: PRODUCT USED FOR UNKNOWN INDICATION
     Dosage: 1 DOSAGE FORM, MONTHLY 1 INJEKTION MONATLICH
     Dates: start: 20200811
  7. VITAMIN D3 [Concomitant]
     Active Substance: CHOLECALCIFEROL
     Dosage: 2 DOSAGE FORM, QD 2 TGL.
     Dates: start: 202006
  8. EFEROX [Concomitant]
     Active Substance: LEVOTHYROXINE SODIUM
     Dosage: 100 MICROGRAM, QD 1 TBL. TGL.
     Dates: start: 201808
  9. VITAMIN K2                         /00357701/ [Concomitant]
     Active Substance: MENATETRENONE
     Dosage: 5 GTT DROPS, QD 5 TROPFEN TGL.
     Dates: start: 202006

REACTIONS (9)
  - Chills [Unknown]
  - Fatigue [Unknown]
  - Decreased appetite [Unknown]
  - Dyspnoea [Unknown]
  - Arrhythmia [Unknown]
  - Toothache [Unknown]
  - Taste disorder [Unknown]
  - Nausea [Unknown]
  - Headache [Unknown]

NARRATIVE: CASE EVENT DATE: 20200812
